FAERS Safety Report 19408453 (Version 1)
Quarter: 2021Q2

REPORT INFORMATION
  Report Type: Spontaneous
  Country: PL (occurrence: PL)
  Receive Date: 20210612
  Receipt Date: 20210612
  Transmission Date: 20210717
  Serious: Yes (Other)
  Sender: FDA-Public Use
  Company Number: NVSC2021PL102612

PATIENT
  Age: 33 Year
  Sex: Male
  Weight: 100 kg

DRUGS (1)
  1. COSENTYX [Suspect]
     Active Substance: SECUKINUMAB
     Indication: PSORIASIS
     Dosage: 300 MG, QMO
     Route: 058
     Dates: start: 201909, end: 202102

REACTIONS (6)
  - Inflammatory bowel disease [Unknown]
  - Haematochezia [Unknown]
  - Abscess [Unknown]
  - Colitis ulcerative [Unknown]
  - Gastrointestinal haemorrhage [Recovering/Resolving]
  - Cryptitis [Unknown]

NARRATIVE: CASE EVENT DATE: 20210316
